FAERS Safety Report 21076160 (Version 4)
Quarter: 2022Q4

REPORT INFORMATION
  Report Type: Spontaneous
  Country: US (occurrence: US)
  Receive Date: 20220713
  Receipt Date: 20221115
  Transmission Date: 20230113
  Serious: Yes (Other)
  Sender: FDA-Public Use
  Company Number: US-PFIZER INC-PV202200020884

PATIENT
  Age: 66 Year
  Sex: Female
  Weight: 69.841 kg

DRUGS (1)
  1. SULFASALAZINE [Suspect]
     Active Substance: SULFASALAZINE
     Indication: Rheumatoid arthritis
     Dosage: 500 MG, 2X/DAY (500 MG X 2 MORNING, 500 MGX 2 EVENING)
     Route: 048

REACTIONS (4)
  - Choking [Not Recovered/Not Resolved]
  - Dysphagia [Not Recovered/Not Resolved]
  - Nausea [Unknown]
  - Throat irritation [Not Recovered/Not Resolved]
